FAERS Safety Report 8574066-1 (Version None)
Quarter: 2012Q3

REPORT INFORMATION
  Report Type: 
  Country: None (occurrence: None)
  Receive Date: 20120806
  Receipt Date: 20120727
  Transmission Date: 20120928
  Serious: Yes (Hospitalization)
  Sender: FDA-Public Use
  Company Number: PHHO2012KR009979

PATIENT
  Sex: Female
  Weight: 43.5 kg

DRUGS (3)
  1. PRANDIN [Concomitant]
     Indication: IMMUNOSUPPRESSION
     Dosage: 6 MG, BID
     Dates: start: 20111007
  2. CERTICAN [Suspect]
     Indication: RENAL TRANSPLANT
     Dosage: 1.5 MG, UNK
     Route: 048
     Dates: start: 20111020
  3. NEORAL [Suspect]
     Indication: RENAL TRANSPLANT
     Dosage: 25 MG, BID
     Route: 048
     Dates: start: 20110920

REACTIONS (1)
  - HAEMATOCHEZIA [None]
